FAERS Safety Report 6630948-9 (Version None)
Quarter: 2010Q1

REPORT INFORMATION
  Report Type: 
  Country: None (occurrence: None)
  Receive Date: 20100311
  Receipt Date: 20100226
  Transmission Date: 20100710
  Serious: Yes (Hospitalization)
  Sender: FDA-Public Use
  Company Number: US-BIOGENIDEC-2010BI003189

PATIENT
  Age: 60 Year
  Sex: Male

DRUGS (2)
  1. TYSABRI [Suspect]
     Indication: MULTIPLE SCLEROSIS
     Route: 042
     Dates: start: 20061122
  2. MEDICATIONS (NOS) [Concomitant]
     Indication: HYPERTENSION

REACTIONS (7)
  - ASTHENIA [None]
  - COUGH [None]
  - FALL [None]
  - FEELING COLD [None]
  - FEELING HOT [None]
  - HYPOTENSION [None]
  - INFLUENZA LIKE ILLNESS [None]
